FAERS Safety Report 4307560-X (Version None)
Quarter: 2004Q1

REPORT INFORMATION
  Report Type: 
  Country: None (occurrence: None)
  Receive Date: 20040227
  Receipt Date: 20040227
  Transmission Date: 20041129
  Serious: Yes (Death)
  Sender: FDA-Public Use
  Company Number: None

PATIENT
  Sex: Female
  Weight: 66.9056 kg

DRUGS (6)
  1. PACLITAXEL [Suspect]
     Indication: OVARIAN CANCER
     Dosage: 175 MG/M2 IV EVERY 21 DAYS
     Route: 042
     Dates: start: 20040123
  2. DOXIL [Suspect]
     Indication: OVARIAN CANCER
     Dosage: 30 MG/M2 IV EVERY 42 DAYS
     Route: 042
     Dates: start: 20040123
  3. CARBOPLATIN [Suspect]
     Indication: OVARIAN CANCER
     Dosage: AUC5 IV EVERY 21 DAYS
     Route: 042
     Dates: start: 20040123
  4. ALEVE [Concomitant]
  5. TUMS [Concomitant]
  6. PRILOSEC [Concomitant]

REACTIONS (7)
  - ABDOMINAL PAIN [None]
  - ASTHENIA [None]
  - DECREASED APPETITE [None]
  - DRY MOUTH [None]
  - MARKEDLY REDUCED DIETARY INTAKE [None]
  - PAIN [None]
  - WEIGHT DECREASED [None]
